FAERS Safety Report 9096947 (Version 1)
Quarter: 2013Q1

REPORT INFORMATION
  Report Type: Spontaneous
  Country: US (occurrence: None)
  Receive Date: 20130125
  Receipt Date: 20130125
  Transmission Date: 20140127
  Serious: Yes (Death, Hospitalization)
  Sender: FDA-Public Use
  Company Number: 144182

PATIENT
  Sex: Male
  Weight: 85 kg

DRUGS (1)
  1. CYTARABINE [Suspect]
     Indication: ACUTE MYELOID LEUKAEMIA
     Dates: start: 20121211, end: 20130101

REACTIONS (4)
  - Enteritis [None]
  - Neutropenia [None]
  - Septic shock [None]
  - Multi-organ disorder [None]
